FAERS Safety Report 17399135 (Version 3)
Quarter: 2020Q1

REPORT INFORMATION
  Report Type: Report from Study
  Country: None (occurrence: US)
  Receive Date: 20200210
  Receipt Date: 20200330
  Transmission Date: 20200409
  Serious: Yes (Hospitalization, Other)
  Sender: FDA-Public Use
  Company Number: US-ABBVIE-19K-163-3005750-00

PATIENT
  Age: 69 Year
  Sex: Female

DRUGS (3)
  1. HUMIRA [Suspect]
     Active Substance: ADALIMUMAB
     Indication: PSORIASIS
  2. HUMIRA [Suspect]
     Active Substance: ADALIMUMAB
     Indication: CROHN^S DISEASE
     Route: 058
  3. XARELTO [Suspect]
     Active Substance: RIVAROXABAN
     Indication: PRODUCT USED FOR UNKNOWN INDICATION
     Route: 065

REACTIONS (14)
  - Bronchitis [Recovering/Resolving]
  - Device breakage [Unknown]
  - Crohn^s disease [Recovering/Resolving]
  - Atrial fibrillation [Unknown]
  - Medical device pain [Unknown]
  - Cataract [Unknown]
  - Blood magnesium decreased [Unknown]
  - Crohn^s disease [Recovered/Resolved]
  - Atrial fibrillation [Recovering/Resolving]
  - Deep vein thrombosis [Unknown]
  - Gastrointestinal haemorrhage [Recovered/Resolved]
  - Mobility decreased [Unknown]
  - Nasopharyngitis [Unknown]
  - Crohn^s disease [Recovered/Resolved]

NARRATIVE: CASE EVENT DATE: 201909
